FAERS Safety Report 13175020 (Version 1)
Quarter: 2017Q1

REPORT INFORMATION
  Report Type: Spontaneous
  Country: US (occurrence: US)
  Receive Date: 20170201
  Receipt Date: 20170201
  Transmission Date: 20170428
  Serious: Yes (Hospitalization, Other)
  Sender: FDA-Public Use
  Company Number: US-WEST-WARD PHARMACEUTICALS CORP.-US-H14001-17-00280

PATIENT
  Age: 73 Year
  Sex: Female

DRUGS (4)
  1. HALOPERIDOL. [Suspect]
     Active Substance: HALOPERIDOL
     Indication: DELIRIUM
     Dosage: AT BEDTIME
     Route: 042
  2. BUPROPION. [Suspect]
     Active Substance: BUPROPION
     Indication: PRODUCT USED FOR UNKNOWN INDICATION
     Route: 048
  3. HALOPERIDOL. [Suspect]
     Active Substance: HALOPERIDOL
     Route: 042
  4. DIAZEPAM. [Suspect]
     Active Substance: DIAZEPAM
     Indication: PRODUCT USED FOR UNKNOWN INDICATION
     Route: 048

REACTIONS (6)
  - Condition aggravated [Unknown]
  - Drug withdrawal syndrome [Unknown]
  - Failure to thrive [Unknown]
  - Parkinson^s disease [Unknown]
  - Dementia [Unknown]
  - Delirium [Unknown]
